FAERS Safety Report 4672763-1 (Version None)
Quarter: 2005Q2

REPORT INFORMATION
  Report Type: 
  Country: None (occurrence: None)
  Receive Date: 20050523
  Receipt Date: 20050510
  Transmission Date: 20051028
  Serious: Yes (Hospitalization)
  Sender: FDA-Public Use
  Company Number: 2005073597

PATIENT
  Age: 40 Year
  Sex: Female

DRUGS (1)
  1. NASANYL (NAFARELIN ACETATE) [Suspect]
     Indication: ENDOMETRIOSIS
     Dosage: 400 MCG (200 MCG, TWICE DAILY: DAILY), NASAL
     Route: 045
     Dates: start: 20050419, end: 20050422

REACTIONS (1)
  - CEREBRAL INFARCTION [None]
